FAERS Safety Report 19928012 (Version 2)
Quarter: 2021Q4

REPORT INFORMATION
  Report Type: Spontaneous
  Country: DE (occurrence: DE)
  Receive Date: 20211007
  Receipt Date: 20211022
  Transmission Date: 20220303
  Serious: Yes (Life-Threatening, Hospitalization, Other)
  Sender: FDA-Public Use
  Company Number: DE-LUPIN PHARMACEUTICALS INC.-2021-18979

PATIENT
  Age: 55 Year
  Sex: Male

DRUGS (2)
  1. METRONIDAZOLE [Suspect]
     Active Substance: METRONIDAZOLE
     Indication: Periodontitis
     Dosage: UNK
     Route: 065
     Dates: start: 20201023
  2. AMOXICILLIN [Suspect]
     Active Substance: AMOXICILLIN
     Indication: Periodontitis
     Dosage: UNK
     Route: 065
     Dates: start: 20201023

REACTIONS (1)
  - Toxic epidermal necrolysis [Recovered/Resolved]

NARRATIVE: CASE EVENT DATE: 20201031
